FAERS Safety Report 11992872 (Version 1)
Quarter: 2016Q1

REPORT INFORMATION
  Report Type: Spontaneous
  Country: US (occurrence: US)
  Receive Date: 20160203
  Receipt Date: 20160203
  Transmission Date: 20160526
  Serious: No
  Sender: FDA-Public Use
  Company Number: US-UCBSA-2015014827

PATIENT

DRUGS (5)
  1. DEPAKOTE [Suspect]
     Active Substance: DIVALPROEX SODIUM
     Indication: SEIZURE
     Dosage: 1500 MG, 2X/DAY (BID)
  2. LAMICTAL [Suspect]
     Active Substance: LAMOTRIGINE
     Indication: SEIZURE
     Dosage: 650 MG, 2X/DAY (BID)
  3. KEPPRA [Suspect]
     Active Substance: LEVETIRACETAM
     Indication: SEIZURE
     Dosage: 3000 MG, 2X/DAY (BID)
  4. TEGRETOL [Suspect]
     Active Substance: CARBAMAZEPINE
     Indication: SEIZURE
     Dosage: 1600 MG, 2X/DAY (BID)
  5. ZONEGRAN [Suspect]
     Active Substance: ZONISAMIDE
     Indication: SEIZURE
     Dosage: UNKNOWN DOSAGE

REACTIONS (9)
  - Complex partial seizures [Unknown]
  - Oral pain [Recovered/Resolved]
  - Toothache [Recovered/Resolved]
  - Overdose [Unknown]
  - Drug ineffective [Unknown]
  - Gingival recession [Recovered/Resolved]
  - Off label use [Unknown]
  - Generalised tonic-clonic seizure [Unknown]
  - Vagal nerve stimulator implantation [Not Recovered/Not Resolved]
